FAERS Safety Report 12745244 (Version 1)
Quarter: 2016Q3

REPORT INFORMATION
  Report Type: Spontaneous
  Country: US (occurrence: US)
  Receive Date: 20160915
  Receipt Date: 20160915
  Transmission Date: 20161109
  Serious: No
  Sender: FDA-Public Use
  Company Number: US-BAYER-2016-179149

PATIENT
  Age: 75 Year
  Sex: Female
  Weight: 61.22 kg

DRUGS (3)
  1. MIRALAX [Suspect]
     Active Substance: POLYETHYLENE GLYCOL 3350
     Indication: GASTROINTESTINAL DISORDER
  2. METFORMIN [Concomitant]
     Active Substance: METFORMIN HYDROCHLORIDE
  3. MIRALAX [Suspect]
     Active Substance: POLYETHYLENE GLYCOL 3350
     Indication: GASTROINTESTINAL DISORDER
     Dosage: 1 CAPFUL NIGHTLY
     Route: 048
     Dates: end: 20160913

REACTIONS (2)
  - Off label use [None]
  - Product use issue [None]
